FAERS Safety Report 7688416-1 (Version None)
Quarter: 2011Q3

REPORT INFORMATION
  Report Type: 
  Country: None (occurrence: None)
  Receive Date: 20110817
  Receipt Date: 20110812
  Transmission Date: 20111222
  Serious: Yes (Other)
  Sender: FDA-Public Use
  Company Number: US-PFIZER INC-2011187890

PATIENT
  Age: 76 Year
  Sex: Male

DRUGS (3)
  1. COUMADIN [Suspect]
  2. PRADAXA [Suspect]
  3. LIPITOR [Suspect]

REACTIONS (2)
  - MEMORY IMPAIRMENT [None]
  - HAEMORRHAGE [None]
